FAERS Safety Report 17723867 (Version 3)
Quarter: 2020Q3

REPORT INFORMATION
  Report Type: Spontaneous
  Country: US (occurrence: US)
  Receive Date: 20200429
  Receipt Date: 20200716
  Transmission Date: 20201102
  Serious: No
  Sender: FDA-Public Use
  Company Number: US-SA-2020SA110981

PATIENT

DRUGS (1)
  1. ADMELOG [Suspect]
     Active Substance: INSULIN LISPRO
     Indication: TYPE 1 DIABETES MELLITUS
     Dosage: 16 TO 20 IU, TID
     Route: 065
     Dates: start: 202003

REACTIONS (2)
  - Therapeutic product effect decreased [Unknown]
  - Blood glucose abnormal [Unknown]
